FAERS Safety Report 5456765-3 (Version None)
Quarter: 2007Q3

REPORT INFORMATION
  Report Type: 
  Country: None (occurrence: None)
  Receive Date: 20070918
  Receipt Date: 20070228
  Transmission Date: 20080115
  Serious: No
  Sender: FDA-Public Use
  Company Number: US-ASTRAZENECA-2006UW26065

PATIENT
  Age: 40 Year
  Sex: Male
  Weight: 81.8 kg

DRUGS (4)
  1. SEROQUEL [Suspect]
     Indication: MENTAL DISORDER
     Route: 048
     Dates: start: 19780101
  2. RISPERDAL [Concomitant]
     Dates: start: 19780101
  3. ZYPREXA [Concomitant]
     Dates: start: 19770101
  4. QUETIPINEX [Concomitant]
     Dates: start: 19770101

REACTIONS (4)
  - BLOOD CHOLESTEROL INCREASED [None]
  - DIABETES MELLITUS [None]
  - MENTAL DISORDER [None]
  - PAIN IN EXTREMITY [None]
